FAERS Safety Report 10983222 (Version 2)
Quarter: 2015Q2

REPORT INFORMATION
  Report Type: Spontaneous
  Country: US (occurrence: US)
  Receive Date: 20150403
  Receipt Date: 20150522
  Transmission Date: 20150821
  Serious: Yes (Other)
  Sender: FDA-Public Use
  Company Number: US-PFIZER INC-2015110798

PATIENT
  Age: 48 Year
  Sex: Male
  Weight: 75 kg

DRUGS (2)
  1. ADVIL PM [Suspect]
     Active Substance: DIPHENHYDRAMINE CITRATE\IBUPROFEN
     Indication: PAIN
     Dosage: 2-4 CAPLETS PERIODICALLY WITH SEVERAL HOURS IN BETWEEN
     Dates: start: 2014
  2. ADVIL PM [Suspect]
     Active Substance: DIPHENHYDRAMINE CITRATE\IBUPROFEN
     Indication: SLEEP DISORDER

REACTIONS (6)
  - Coma [Recovered/Resolved]
  - Overdose [Recovered/Resolved]
  - Sedation [Recovered/Resolved]
  - Cardiac disorder [Recovered/Resolved]
  - Loss of consciousness [Recovered/Resolved]
  - Product contamination [Recovered/Resolved]

NARRATIVE: CASE EVENT DATE: 2014
